FAERS Safety Report 21863686 (Version 1)
Quarter: 2023Q1

REPORT INFORMATION
  Report Type: Spontaneous
  Country: US (occurrence: US)
  Receive Date: 20230116
  Receipt Date: 20230116
  Transmission Date: 20230418
  Serious: Yes (Other)
  Sender: FDA-Public Use
  Company Number: US-drreddys-LIT/USA/23/0159873

PATIENT
  Age: 40 Year
  Sex: Female

DRUGS (4)
  1. LETROZOLE [Suspect]
     Active Substance: LETROZOLE
     Indication: Ovarian granulosa cell tumour
  2. VENLAFAXINE HYDROCHLORIDE [Suspect]
     Active Substance: VENLAFAXINE HYDROCHLORIDE
     Indication: Hot flush
  3. NORETHINDRONE [Suspect]
     Active Substance: NORETHINDRONE
     Indication: Hot flush
  4. GABAPENTIN [Suspect]
     Active Substance: GABAPENTIN
     Indication: Hot flush

REACTIONS (2)
  - Drug ineffective for unapproved indication [Unknown]
  - Hot flush [Unknown]
